FAERS Safety Report 23902282 (Version 1)
Quarter: 2024Q2

REPORT INFORMATION
  Report Type: Spontaneous
  Country: US (occurrence: None)
  Receive Date: 20240527
  Receipt Date: 20240527
  Transmission Date: 20240716
  Serious: No
  Sender: FDA-Public Use
  Company Number: US-ROCHE-3519854

PATIENT
  Sex: Female

DRUGS (2)
  1. ACTEMRA [Suspect]
     Active Substance: TOCILIZUMAB
     Indication: Giant cell arteritis
     Dosage: I STARTED GOING EVERY 3 WEEKS. IN THE LAST COUPLE MONTHS I WAS BUSY SO I WENT LONGER THAN THAT
     Route: 058
     Dates: start: 2019
  2. PREDNISONE [Suspect]
     Active Substance: PREDNISONE
     Indication: Giant cell arteritis
     Route: 065

REACTIONS (8)
  - Viral infection [Recovered/Resolved]
  - Eye pruritus [Unknown]
  - Vitreous floaters [Unknown]
  - Tooth disorder [Unknown]
  - Balance disorder [Unknown]
  - Headache [Unknown]
  - Dysphonia [Unknown]
  - Hypoacusis [Unknown]
